FAERS Safety Report 8604471-6 (Version None)
Quarter: 2012Q3

REPORT INFORMATION
  Report Type: 
  Country: None (occurrence: None)
  Receive Date: 20120820
  Receipt Date: 20120814
  Transmission Date: 20120928
  Serious: Yes (Life-Threatening, Hospitalization)
  Sender: FDA-Public Use
  Company Number: TR-MILLENNIUM PHARMACEUTICALS, INC.-2009-01846

PATIENT

DRUGS (2)
  1. DEXAMETHASONE [Suspect]
     Indication: MULTIPLE MYELOMA
     Dosage: 20 MG, UNK
     Route: 048
     Dates: start: 20090209, end: 20090420
  2. VELCADE [Suspect]
     Indication: MULTIPLE MYELOMA
     Dosage: 2.57 MG, UNK
     Route: 042
     Dates: start: 20090209, end: 20090420

REACTIONS (2)
  - THROMBOCYTOPENIA [None]
  - PNEUMONIA [None]
